FAERS Safety Report 8544265-3 (Version None)
Quarter: 2012Q3

REPORT INFORMATION
  Report Type: 
  Country: None (occurrence: None)
  Receive Date: 20120719
  Receipt Date: 20120719
  Transmission Date: 20120928
  Serious: Yes (Life-Threatening)
  Sender: FDA-Public Use
  Company Number: None

PATIENT
  Age: 58 Year
  Sex: Female
  Weight: 62.5964 kg

DRUGS (1)
  1. ETODOLAC [Suspect]
     Indication: ARTHRITIS
     Dosage: 1 TABLET TWICE PO
     Route: 048
     Dates: start: 20111221, end: 20120123

REACTIONS (3)
  - FATIGUE [None]
  - HEPATITIS [None]
  - PANCREATIC CARCINOMA [None]
